FAERS Safety Report 5764758-1 (Version None)
Quarter: 2008Q2

REPORT INFORMATION
  Report Type: 
  Country: None (occurrence: None)
  Receive Date: 20080611
  Receipt Date: 20080603
  Transmission Date: 20081010
  Serious: Yes (Death)
  Sender: FDA-Public Use
  Company Number: FR-MERCK-0804FRA00054

PATIENT
  Age: 82 Year
  Sex: Female

DRUGS (5)
  1. COZAAR [Suspect]
     Indication: HYPERTENSION
     Route: 048
     Dates: start: 20030101, end: 20080101
  2. COZAAR [Suspect]
     Route: 048
     Dates: start: 20080101, end: 20080301
  3. COZAAR [Suspect]
     Route: 048
     Dates: start: 20080301, end: 20080401
  4. FLUINDIONE [Concomitant]
     Indication: ATRIAL FIBRILLATION
     Route: 048
     Dates: end: 20080401
  5. LEVOTHYROXINE SODIUM [Concomitant]
     Route: 048
     Dates: end: 20080401

REACTIONS (2)
  - DEATH [None]
  - PSORIASIS [None]
